FAERS Safety Report 24761054 (Version 3)
Quarter: 2025Q1

REPORT INFORMATION
  Report Type: Spontaneous
  Country: DE (occurrence: DE)
  Receive Date: 20241220
  Receipt Date: 20250306
  Transmission Date: 20250409
  Serious: Yes (Hospitalization, Other)
  Sender: MYLAN
  Company Number: DE-OTSUKA-2024_032584

PATIENT
  Age: 29 Year
  Sex: Female

DRUGS (1)
  1. ARIPIPRAZOLE [Suspect]
     Active Substance: ARIPIPRAZOLE
     Indication: Schizophrenia
     Dosage: 10 MILLIGRAM, QD
     Dates: start: 20240614

REACTIONS (3)
  - Muscle contracture [Not Recovered/Not Resolved]
  - Dyskinesia [Recovered/Resolved]
  - Oculogyric crisis [Not Recovered/Not Resolved]

NARRATIVE: CASE EVENT DATE: 20240719
